FAERS Safety Report 6251602-1 (Version None)
Quarter: 2009Q2

REPORT INFORMATION
  Report Type: 
  Country: None (occurrence: None)
  Receive Date: 20090630
  Receipt Date: 20090627
  Transmission Date: 20091009
  Serious: Yes (Hospitalization)
  Sender: FDA-Public Use
  Company Number: US-RB-016944-09

PATIENT
  Sex: Male
  Weight: 76.5 kg

DRUGS (9)
  1. SUBUTEX [Suspect]
     Route: 060
     Dates: start: 20080101, end: 20080101
  2. SUBUTEX [Suspect]
     Route: 060
     Dates: start: 20080101
  3. SUBOXONE [Suspect]
     Route: 060
     Dates: start: 20080101, end: 20080101
  4. LODINE [Concomitant]
     Indication: ARTHRITIS
     Dosage: UNKNOWN DOSE
     Route: 065
     Dates: start: 20080101, end: 20090501
  5. EXCEDRIN [Concomitant]
     Indication: ARTHRITIS
     Dosage: UNKNOWN DOSE
     Route: 065
  6. EXCEDRIN [Concomitant]
     Indication: HEADACHE
     Dosage: UNKNOWN DOSE
     Route: 065
  7. VITAMINS [Concomitant]
     Indication: ROUTINE HEALTH MAINTENANCE
     Dosage: UNKNOWN DOSING INFORMATION
     Route: 065
  8. LOVAZA [Concomitant]
     Indication: VITAMIN SUPPLEMENTATION
     Dosage: DOSE UNKNOWN
  9. ASCORBIC ACID [Concomitant]
     Indication: VITAMIN SUPPLEMENTATION
     Dosage: DOSE UNKNOWN

REACTIONS (8)
  - ABDOMINAL PAIN LOWER [None]
  - ASTHENIA [None]
  - BRONCHITIS [None]
  - COUGH [None]
  - DIVERTICULITIS [None]
  - HYPOACUSIS [None]
  - OROPHARYNGEAL PAIN [None]
  - SINUS CONGESTION [None]
